FAERS Safety Report 5987000-5 (Version None)
Quarter: 2008Q4

REPORT INFORMATION
  Report Type: 
  Country: None (occurrence: None)
  Receive Date: 20081209
  Receipt Date: 20081205
  Transmission Date: 20090506
  Serious: Yes (Other)
  Sender: FDA-Public Use
  Company Number: A0759660A

PATIENT
  Age: 41 Year
  Sex: Female
  Weight: 50 kg

DRUGS (1)
  1. ZYBAN [Suspect]
     Indication: SMOKING CESSATION THERAPY
     Dosage: 150MG PER DAY
     Route: 048
     Dates: start: 20060101

REACTIONS (7)
  - DIZZINESS [None]
  - DYSPNOEA [None]
  - FATIGUE [None]
  - INITIAL INSOMNIA [None]
  - INSOMNIA [None]
  - MONOPARESIS [None]
  - PARAESTHESIA [None]
